FAERS Safety Report 8447913-1 (Version None)
Quarter: 2012Q2

REPORT INFORMATION
  Report Type: 
  Country: None (occurrence: None)
  Receive Date: 20120619
  Receipt Date: 20120612
  Transmission Date: 20120825
  Serious: Yes (Other)
  Sender: FDA-Public Use
  Company Number: CHPA2010GB16624

PATIENT
  Sex: Female
  Weight: 89 kg

DRUGS (7)
  1. SCOPOLAMINE [Suspect]
     Indication: SALIVARY HYPERSECRETION
     Dosage: 1 DF, Q72H
     Route: 062
     Dates: start: 20100901
  2. CLOZARIL [Suspect]
     Dosage: 50 MG, BID
  3. CLOZARIL [Suspect]
     Indication: PSYCHOTIC DISORDER
     Dosage: 50 MG, UNK
     Route: 048
     Dates: start: 20100825
  4. CLOZARIL [Suspect]
     Dosage: 75MG IN MORNING AND 100MG IN EVENING
  5. DIAZEPAM [Concomitant]
     Indication: AGITATION
     Dosage: 1600 MG, UNK
     Route: 048
  6. PROCYCLIDINE HYDROCHLORIDE 2MG TAB [Concomitant]
     Indication: SALIVARY HYPERSECRETION
     Dosage: 10 MG, UNK
     Route: 048
     Dates: end: 20100801
  7. VALPROIC ACID [Concomitant]
     Indication: AFFECTIVE DISORDER
     Dosage: 1600 MG, UNK
     Route: 048

REACTIONS (7)
  - OFF LABEL USE [None]
  - TACHYCARDIA [None]
  - FAECALOMA [None]
  - CONSTIPATION [None]
  - SEDATION [None]
  - OBESITY [None]
  - WEIGHT INCREASED [None]
